FAERS Safety Report 19251705 (Version 1)
Quarter: 2021Q2

REPORT INFORMATION
  Report Type: Report from Study
  Country: US (occurrence: US)
  Receive Date: 20210512
  Receipt Date: 20210512
  Transmission Date: 20210717
  Serious: Yes (Death, Life-Threatening, Hospitalization, Disabling, Other)
  Sender: FDA-Public Use
  Company Number: US-GILEAD-2021-0530238

PATIENT
  Sex: Male
  Weight: 60.2 kg

DRUGS (7)
  1. OLANZAPINE. [Concomitant]
     Active Substance: OLANZAPINE
  2. REMDESIVIR. [Suspect]
     Active Substance: REMDESIVIR
     Indication: COVID-19
     Dosage: UNK
     Route: 042
     Dates: start: 20201207
  3. ZITHROMAX [Suspect]
     Active Substance: AZITHROMYCIN DIHYDRATE
     Indication: PRODUCT USED FOR UNKNOWN INDICATION
     Dosage: UNK
     Route: 065
     Dates: start: 20201208
  4. SEROQUEL [Suspect]
     Active Substance: QUETIAPINE FUMARATE
     Indication: PRODUCT USED FOR UNKNOWN INDICATION
     Dosage: UNK
     Route: 065
     Dates: start: 20201208
  5. HALOPERIDOL. [Concomitant]
     Active Substance: HALOPERIDOL
  6. CEFTRIAXONE. [Concomitant]
     Active Substance: CEFTRIAXONE
  7. MELOXICAM. [Concomitant]
     Active Substance: MELOXICAM

REACTIONS (7)
  - Atrial fibrillation [Unknown]
  - Electrocardiogram QT prolonged [Fatal]
  - Cardiac arrest [Fatal]
  - Cerebrovascular accident [Unknown]
  - Cardiac arrest [Recovered/Resolved]
  - Cardio-respiratory arrest [Recovering/Resolving]
  - Respiratory arrest [Fatal]

NARRATIVE: CASE EVENT DATE: 20201207
